FAERS Safety Report 7184581-3 (Version None)
Quarter: 2010Q4

REPORT INFORMATION
  Report Type: 
  Country: None (occurrence: None)
  Receive Date: 20101222
  Receipt Date: 20101208
  Transmission Date: 20110411
  Serious: Yes (Hospitalization, Other)
  Sender: FDA-Public Use
  Company Number: US-ELI_LILLY_AND_COMPANY-US201012002745

PATIENT
  Sex: Female

DRUGS (1)
  1. HUMATROPE [Suspect]
     Indication: GROWTH HORMONE DEFICIENCY
     Dosage: 0.5 MG, 6/W

REACTIONS (7)
  - FALL [None]
  - HIP FRACTURE [None]
  - MEMORY IMPAIRMENT [None]
  - RECTAL HAEMORRHAGE [None]
  - STENT PLACEMENT [None]
  - ULCER HAEMORRHAGE [None]
  - VASCULAR GRAFT [None]
